FAERS Safety Report 6800418-3 (Version None)
Quarter: 2010Q2

REPORT INFORMATION
  Report Type: 
  Country: None (occurrence: None)
  Receive Date: 20100629
  Receipt Date: 20100623
  Transmission Date: 20101027
  Serious: Yes (Hospitalization)
  Sender: FDA-Public Use
  Company Number: US-BIOGENIDEC-2010BI019464

PATIENT
  Age: 50 Year
  Sex: Male

DRUGS (2)
  1. TYSABRI [Suspect]
     Indication: MULTIPLE SCLEROSIS
     Route: 042
     Dates: start: 20050107, end: 20050201
  2. TYSABRI [Suspect]
     Route: 042
     Dates: start: 20060929

REACTIONS (8)
  - APHASIA [None]
  - BRAIN INJURY [None]
  - COMA [None]
  - FALL [None]
  - HEAD INJURY [None]
  - MEMORY IMPAIRMENT [None]
  - MOBILITY DECREASED [None]
  - PERONEAL NERVE PALSY [None]
